FAERS Safety Report 23128798 (Version 3)
Quarter: 2023Q4

REPORT INFORMATION
  Report Type: Spontaneous
  Country: JP (occurrence: JP)
  Receive Date: 20231031
  Receipt Date: 20231102
  Transmission Date: 20240109
  Serious: Yes (Death, Hospitalization, Other)
  Sender: FDA-Public Use
  Company Number: JP-NBI-BJ202315799

PATIENT
  Age: 85 Year
  Sex: Male

DRUGS (1)
  1. DABIGATRAN ETEXILATE MESYLATE [Suspect]
     Active Substance: DABIGATRAN ETEXILATE MESYLATE
     Indication: Atrial fibrillation
     Route: 048
     Dates: end: 20230913

REACTIONS (3)
  - Enterocolitis [Fatal]
  - Post procedural haemorrhage [Unknown]
  - Enterocolitis [Unknown]

NARRATIVE: CASE EVENT DATE: 20230915
